FAERS Safety Report 23222087 (Version 2)
Quarter: 2023Q4

REPORT INFORMATION
  Report Type: Spontaneous
  Country: SI (occurrence: SI)
  Receive Date: 20231123
  Receipt Date: 20231127
  Transmission Date: 20240110
  Serious: Yes (Other)
  Sender: FDA-Public Use
  Company Number: SI-AstraZeneca-2023A261428

PATIENT
  Sex: Male

DRUGS (1)
  1. SYNAGIS [Suspect]
     Active Substance: PALIVIZUMAB
     Indication: Respiratory syncytial virus test
     Route: 030

REACTIONS (4)
  - Erythema [Unknown]
  - Agitation [Unknown]
  - Pyrexia [Unknown]
  - Feeling abnormal [Unknown]
